FAERS Safety Report 8142487-7 (Version None)
Quarter: 2012Q1

REPORT INFORMATION
  Report Type: 
  Country: None (occurrence: None)
  Receive Date: 20120216
  Receipt Date: 20120209
  Transmission Date: 20120608
  Serious: Yes (Hospitalization, Other)
  Sender: FDA-Public Use
  Company Number: US-NOVOPROD-344634

PATIENT
  Age: 67 Year
  Sex: Female
  Weight: 77.098 kg

DRUGS (8)
  1. CRESTOR [Concomitant]
     Indication: BLOOD CHOLESTEROL INCREASED
     Dosage: UNKNOWN
     Route: 065
  2. LANTUS [Concomitant]
     Indication: TYPE 2 DIABETES MELLITUS
     Dosage: 35 MG, QD AT NIGHT
     Route: 058
     Dates: start: 20110606
  3. LANTUS [Concomitant]
     Dosage: 75 MG, UNK
     Route: 058
     Dates: end: 20110606
  4. MICARDIS [Concomitant]
     Indication: HYPERTENSION
     Dosage: 80 MG, QD
     Route: 065
  5. VICTOZA [Suspect]
     Indication: TYPE 2 DIABETES MELLITUS
     Dosage: 0.6 MG, QD
     Route: 058
     Dates: start: 20110606, end: 20110613
  6. VICTOZA [Suspect]
     Dosage: 1.2 MG, QD
     Route: 058
     Dates: start: 20110613, end: 20110620
  7. GLIPIZIDE [Concomitant]
     Indication: TYPE 2 DIABETES MELLITUS
     Dosage: UNKNOWN, QD, ONE PILL IN THE MORNING
     Route: 048
  8. VICTOZA [Suspect]
     Dosage: 1.8 MG, QD
     Route: 058
     Dates: start: 20110620

REACTIONS (4)
  - VIRAL TEST POSITIVE [None]
  - DEHYDRATION [None]
  - SYNCOPE [None]
  - DIARRHOEA [None]
